FAERS Safety Report 20189381 (Version 8)
Quarter: 2022Q2

REPORT INFORMATION
  Report Type: Report from Study
  Country: DE (occurrence: None)
  Receive Date: 20211215
  Receipt Date: 20220506
  Transmission Date: 20220721
  Serious: Yes (Hospitalization)
  Sender: FDA-Public Use
  Company Number: DE-ROCHE-2972038

PATIENT
  Age: 54 Year
  Sex: Male
  Weight: 67 kg

DRUGS (94)
  1. OCRELIZUMAB [Suspect]
     Active Substance: OCRELIZUMAB
     Indication: Primary progressive multiple sclerosis
     Dosage: TWO INFUSIONS OF BLINDED OCRELIZUMAB SEPARATED BY 14 DAYS IN EACH TREATMENT CYCLE OF 24 WEEKS (AS PE
     Route: 042
     Dates: start: 20120423
  2. OCRELIZUMAB [Suspect]
     Active Substance: OCRELIZUMAB
     Indication: Primary progressive multiple sclerosis
     Route: 042
     Dates: start: 20160111, end: 20160111
  3. OCRELIZUMAB [Suspect]
     Active Substance: OCRELIZUMAB
     Route: 042
     Dates: start: 20160125, end: 20160125
  4. OCRELIZUMAB [Suspect]
     Active Substance: OCRELIZUMAB
     Route: 042
     Dates: start: 20160627, end: 20160627
  5. OCRELIZUMAB [Suspect]
     Active Substance: OCRELIZUMAB
     Route: 042
     Dates: start: 20160711, end: 20160711
  6. OCRELIZUMAB [Suspect]
     Active Substance: OCRELIZUMAB
     Route: 042
     Dates: start: 20161207, end: 20161207
  7. OCRELIZUMAB [Suspect]
     Active Substance: OCRELIZUMAB
     Route: 042
     Dates: start: 20161221, end: 20161221
  8. OCRELIZUMAB [Suspect]
     Active Substance: OCRELIZUMAB
     Route: 042
     Dates: start: 20170529, end: 20170529
  9. OCRELIZUMAB [Suspect]
     Active Substance: OCRELIZUMAB
     Route: 042
     Dates: start: 20171113, end: 20171113
  10. OCRELIZUMAB [Suspect]
     Active Substance: OCRELIZUMAB
     Route: 042
     Dates: start: 20180502, end: 20180502
  11. OCRELIZUMAB [Suspect]
     Active Substance: OCRELIZUMAB
     Route: 042
     Dates: start: 20181015, end: 20181015
  12. OCRELIZUMAB [Suspect]
     Active Substance: OCRELIZUMAB
     Route: 042
     Dates: start: 20190403, end: 20190403
  13. OCRELIZUMAB [Suspect]
     Active Substance: OCRELIZUMAB
     Route: 042
     Dates: start: 20190916, end: 20190916
  14. OCRELIZUMAB [Suspect]
     Active Substance: OCRELIZUMAB
     Route: 042
     Dates: start: 20200302, end: 20200302
  15. OCRELIZUMAB [Suspect]
     Active Substance: OCRELIZUMAB
     Route: 042
     Dates: start: 20200812, end: 20200812
  16. OCRELIZUMAB [Suspect]
     Active Substance: OCRELIZUMAB
     Route: 042
     Dates: start: 20210201, end: 20210201
  17. OCRELIZUMAB [Suspect]
     Active Substance: OCRELIZUMAB
     Route: 042
     Dates: start: 20210201, end: 20210201
  18. OCRELIZUMAB [Suspect]
     Active Substance: OCRELIZUMAB
     Route: 042
     Dates: start: 20210719, end: 20210719
  19. DIMETHINDENE MALEATE [Concomitant]
     Active Substance: DIMETHINDENE MALEATE
     Dates: start: 20210201
  20. DIMETHINDENE MALEATE [Concomitant]
     Active Substance: DIMETHINDENE MALEATE
     Dates: start: 20200302
  21. DIMETHINDENE MALEATE [Concomitant]
     Active Substance: DIMETHINDENE MALEATE
     Dates: start: 20190403
  22. DIMETHINDENE MALEATE [Concomitant]
     Active Substance: DIMETHINDENE MALEATE
     Dates: start: 20190916
  23. DIMETHINDENE MALEATE [Concomitant]
     Active Substance: DIMETHINDENE MALEATE
     Dates: start: 20210719
  24. METHYLPREDNISOLONE [Concomitant]
     Active Substance: METHYLPREDNISOLONE
     Dates: start: 20210201
  25. METHYLPREDNISOLONE [Concomitant]
     Active Substance: METHYLPREDNISOLONE
     Dates: start: 20200302
  26. METHYLPREDNISOLONE [Concomitant]
     Active Substance: METHYLPREDNISOLONE
     Dates: start: 20180502
  27. METHYLPREDNISOLONE [Concomitant]
     Active Substance: METHYLPREDNISOLONE
     Dates: start: 20190403
  28. METHYLPREDNISOLONE [Concomitant]
     Active Substance: METHYLPREDNISOLONE
     Dates: start: 20161207
  29. METHYLPREDNISOLONE [Concomitant]
     Active Substance: METHYLPREDNISOLONE
     Dates: start: 20120507
  30. METHYLPREDNISOLONE [Concomitant]
     Active Substance: METHYLPREDNISOLONE
     Dates: start: 20130408
  31. METHYLPREDNISOLONE [Concomitant]
     Active Substance: METHYLPREDNISOLONE
     Dates: start: 20121008
  32. METHYLPREDNISOLONE [Concomitant]
     Active Substance: METHYLPREDNISOLONE
     Dates: start: 20140908
  33. METHYLPREDNISOLONE [Concomitant]
     Active Substance: METHYLPREDNISOLONE
     Dates: start: 20150209
  34. METHYLPREDNISOLONE [Concomitant]
     Active Substance: METHYLPREDNISOLONE
     Dates: start: 20130909
  35. METHYLPREDNISOLONE [Concomitant]
     Active Substance: METHYLPREDNISOLONE
     Dates: start: 20140310
  36. METHYLPREDNISOLONE [Concomitant]
     Active Substance: METHYLPREDNISOLONE
     Dates: start: 20160111
  37. METHYLPREDNISOLONE [Concomitant]
     Active Substance: METHYLPREDNISOLONE
     Dates: start: 20160711
  38. METHYLPREDNISOLONE [Concomitant]
     Active Substance: METHYLPREDNISOLONE
     Dates: start: 20200812
  39. METHYLPREDNISOLONE [Concomitant]
     Active Substance: METHYLPREDNISOLONE
     Dates: start: 20150713
  40. METHYLPREDNISOLONE [Concomitant]
     Active Substance: METHYLPREDNISOLONE
     Dates: start: 20171113
  41. METHYLPREDNISOLONE [Concomitant]
     Active Substance: METHYLPREDNISOLONE
     Dates: start: 20181015
  42. METHYLPREDNISOLONE [Concomitant]
     Active Substance: METHYLPREDNISOLONE
     Dates: start: 20190916
  43. METHYLPREDNISOLONE [Concomitant]
     Active Substance: METHYLPREDNISOLONE
     Dates: start: 20210719
  44. METHYLPREDNISOLONE [Concomitant]
     Active Substance: METHYLPREDNISOLONE
     Dates: start: 20161221
  45. METHYLPREDNISOLONE [Concomitant]
     Active Substance: METHYLPREDNISOLONE
     Dates: start: 20121022
  46. METHYLPREDNISOLONE [Concomitant]
     Active Substance: METHYLPREDNISOLONE
     Dates: start: 20120423
  47. METHYLPREDNISOLONE [Concomitant]
     Active Substance: METHYLPREDNISOLONE
     Dates: start: 20130923
  48. METHYLPREDNISOLONE [Concomitant]
     Active Substance: METHYLPREDNISOLONE
     Dates: start: 20140224
  49. METHYLPREDNISOLONE [Concomitant]
     Active Substance: METHYLPREDNISOLONE
     Dates: start: 20160125
  50. METHYLPREDNISOLONE [Concomitant]
     Active Substance: METHYLPREDNISOLONE
     Dates: start: 20130325
  51. METHYLPREDNISOLONE [Concomitant]
     Active Substance: METHYLPREDNISOLONE
     Dates: start: 20150126
  52. METHYLPREDNISOLONE [Concomitant]
     Active Substance: METHYLPREDNISOLONE
     Dates: start: 20150727
  53. METHYLPREDNISOLONE [Concomitant]
     Active Substance: METHYLPREDNISOLONE
     Dates: start: 20160627
  54. METHYLPREDNISOLONE [Concomitant]
     Active Substance: METHYLPREDNISOLONE
     Dates: start: 20170529
  55. DIMETHINDENE [Concomitant]
     Active Substance: DIMETHINDENE
     Dates: start: 20120423
  56. DIMETHINDENE [Concomitant]
     Active Substance: DIMETHINDENE
     Dates: start: 20180502
  57. DIMETHINDENE [Concomitant]
     Active Substance: DIMETHINDENE
     Dates: start: 20161207
  58. DIMETHINDENE [Concomitant]
     Active Substance: DIMETHINDENE
     Dates: start: 20130408
  59. DIMETHINDENE [Concomitant]
     Active Substance: DIMETHINDENE
     Dates: start: 20121008
  60. DIMETHINDENE [Concomitant]
     Active Substance: DIMETHINDENE
     Dates: start: 20140908
  61. DIMETHINDENE [Concomitant]
     Active Substance: DIMETHINDENE
     Dates: start: 20150209
  62. DIMETHINDENE [Concomitant]
     Active Substance: DIMETHINDENE
     Dates: start: 20130909
  63. DIMETHINDENE [Concomitant]
     Active Substance: DIMETHINDENE
     Dates: start: 20140310
  64. DIMETHINDENE [Concomitant]
     Active Substance: DIMETHINDENE
     Dates: start: 20160111
  65. DIMETHINDENE [Concomitant]
     Active Substance: DIMETHINDENE
     Dates: start: 20160111
  66. DIMETHINDENE [Concomitant]
     Active Substance: DIMETHINDENE
     Dates: start: 20160711
  67. DIMETHINDENE [Concomitant]
     Active Substance: DIMETHINDENE
     Dates: start: 20200812
  68. DIMETHINDENE [Concomitant]
     Active Substance: DIMETHINDENE
     Dates: start: 20150713
  69. DIMETHINDENE [Concomitant]
     Active Substance: DIMETHINDENE
     Dates: start: 20171113
  70. DIMETHINDENE [Concomitant]
     Active Substance: DIMETHINDENE
     Dates: start: 20181015
  71. DIMETHINDENE [Concomitant]
     Active Substance: DIMETHINDENE
     Dates: start: 20161221
  72. DIMETHINDENE [Concomitant]
     Active Substance: DIMETHINDENE
     Dates: start: 20161221
  73. DIMETHINDENE [Concomitant]
     Active Substance: DIMETHINDENE
     Dates: start: 20121022
  74. DIMETHINDENE [Concomitant]
     Active Substance: DIMETHINDENE
     Dates: start: 20130923
  75. DIMETHINDENE [Concomitant]
     Active Substance: DIMETHINDENE
     Dates: start: 20140224
  76. DIMETHINDENE [Concomitant]
     Active Substance: DIMETHINDENE
     Dates: start: 20140825
  77. DIMETHINDENE [Concomitant]
     Active Substance: DIMETHINDENE
     Dates: start: 20160125
  78. DIMETHINDENE [Concomitant]
     Active Substance: DIMETHINDENE
     Dates: start: 20130325
  79. DIMETHINDENE [Concomitant]
     Active Substance: DIMETHINDENE
     Dates: start: 20130325
  80. DIMETHINDENE [Concomitant]
     Active Substance: DIMETHINDENE
     Dates: start: 20150126
  81. DIMETHINDENE [Concomitant]
     Active Substance: DIMETHINDENE
     Dates: start: 20150727
  82. DIMETHINDENE [Concomitant]
     Active Substance: DIMETHINDENE
     Dates: start: 20160627
  83. DIMETHINDENE [Concomitant]
     Active Substance: DIMETHINDENE
     Dates: start: 20170529
  84. DIMETHINDENE [Concomitant]
     Active Substance: DIMETHINDENE
     Dates: start: 20120507
  85. DIMETHINDENE [Concomitant]
     Active Substance: DIMETHINDENE
     Dates: start: 20210201
  86. DIMETHINDENE [Concomitant]
     Active Substance: DIMETHINDENE
     Dates: start: 20210201
  87. DIMETHINDENE [Concomitant]
     Active Substance: DIMETHINDENE
     Dates: start: 20200302
  88. DIMETHINDENE [Concomitant]
     Active Substance: DIMETHINDENE
     Dates: start: 20190403
  89. DIMETHINDENE [Concomitant]
     Active Substance: DIMETHINDENE
     Dates: start: 20190403
  90. DIMETHINDENE [Concomitant]
     Active Substance: DIMETHINDENE
     Dates: start: 20190916
  91. DIMETHINDENE [Concomitant]
     Active Substance: DIMETHINDENE
     Dates: start: 20210719
  92. ACETAMINOPHEN [Concomitant]
     Active Substance: ACETAMINOPHEN
     Indication: COVID-19
     Dates: start: 20211104, end: 20211109
  93. PIPERACILLIN SODIUM\TAZOBACTAM SODIUM [Concomitant]
     Active Substance: PIPERACILLIN SODIUM\TAZOBACTAM SODIUM
     Dates: start: 20211126, end: 20211203
  94. TILIDINE HYDROCHLORIDE [Concomitant]
     Active Substance: TILIDINE HYDROCHLORIDE
     Indication: Back pain
     Dates: start: 20141115, end: 20141126

REACTIONS (1)
  - COVID-19 pneumonia [Recovered/Resolved]

NARRATIVE: CASE EVENT DATE: 20211114
